FAERS Safety Report 18333677 (Version 1)
Quarter: 2020Q3

REPORT INFORMATION
  Report Type: Spontaneous
  Country: None (occurrence: US)
  Receive Date: 20200929
  Receipt Date: 20200929
  Transmission Date: 20201103
  Serious: Yes (Hospitalization, Other)
  Sender: FDA-Public Use
  Company Number: None

PATIENT
  Age: 61 Year
  Sex: Female
  Weight: 52.16 kg

DRUGS (1)
  1. ESTROGEL [Suspect]
     Active Substance: ESTRADIOL
     Indication: MENOPAUSAL SYMPTOMS
     Dosage: DOSE: ONE PUMP PROVIDED APPX. 1.25 GRAMS OF ESTROGEL APPLIED PER INSTRUCTIONS.
     Route: 061
     Dates: start: 20190915, end: 20191111

REACTIONS (25)
  - Balance disorder [None]
  - Loss of consciousness [None]
  - Head injury [None]
  - Confusional state [None]
  - Vertigo [None]
  - Vomiting [None]
  - Speech disorder [None]
  - Fall [None]
  - Contusion [None]
  - Blood pressure decreased [None]
  - Gait inability [None]
  - Disorientation [None]
  - Muscle strain [None]
  - Autoscopy [None]
  - Skin laceration [None]
  - Dizziness [None]
  - Migraine [None]
  - Blood pressure fluctuation [None]
  - Feeling abnormal [None]
  - Gastric infection [None]
  - Nausea [None]
  - Incoherent [None]
  - Headache [None]
  - Fatigue [None]
  - Product complaint [None]

NARRATIVE: CASE EVENT DATE: 20191111
